FAERS Safety Report 16333613 (Version 2)
Quarter: 2019Q3

REPORT INFORMATION
  Report Type: Spontaneous
  Country: JP (occurrence: JP)
  Receive Date: 20190520
  Receipt Date: 20190701
  Transmission Date: 20191004
  Serious: Yes (Hospitalization, Other)
  Sender: FDA-Public Use
  Company Number: JP-JNJFOC-20190522046

PATIENT
  Age: 73 Year
  Sex: Female
  Weight: 45.4 kg

DRUGS (12)
  1. XARELTO [Suspect]
     Active Substance: RIVAROXABAN
     Route: 048
     Dates: start: 20190405, end: 20190425
  2. HEPARIN [Concomitant]
     Active Substance: HEPARIN SODIUM
     Indication: PULMONARY ARTERY THROMBOSIS
     Dosage: FROM 10000 DF TO 16500 DF
     Dates: start: 20190312, end: 20190317
  3. TS-1 [Concomitant]
     Active Substance: GIMERACIL\OTERACIL\TEGAFUR
     Indication: PANCREATIC CARCINOMA
     Route: 048
     Dates: start: 20190405
  4. XARELTO [Suspect]
     Active Substance: RIVAROXABAN
     Indication: DEEP VEIN THROMBOSIS
     Route: 048
     Dates: start: 20190330, end: 20190404
  5. ETIZOLAM [Concomitant]
     Active Substance: ETIZOLAM
     Indication: NEUROSIS
     Route: 048
     Dates: start: 20190121
  6. XARELTO [Suspect]
     Active Substance: RIVAROXABAN
     Route: 048
     Dates: start: 20190426, end: 20190502
  7. CYMBALTA [Concomitant]
     Active Substance: DULOXETINE HYDROCHLORIDE
     Indication: HYPOAESTHESIA
     Route: 048
     Dates: start: 20190121
  8. HEPARIN [Concomitant]
     Active Substance: HEPARIN SODIUM
     Dates: start: 20190318, end: 20190330
  9. OXYGEN. [Concomitant]
     Active Substance: OXYGEN
     Dates: start: 201903
  10. XARELTO [Suspect]
     Active Substance: RIVAROXABAN
     Indication: PULMONARY EMBOLISM
     Route: 048
     Dates: start: 20190308, end: 20190330
  11. RABEPRAZOLE NA [Concomitant]
     Active Substance: RABEPRAZOLE SODIUM
     Indication: GASTROOESOPHAGEAL REFLUX DISEASE
     Route: 048
     Dates: start: 20181101
  12. AMLODIN [Concomitant]
     Active Substance: AMLODIPINE BESYLATE
     Indication: HYPERTENSION
     Route: 048
     Dates: start: 20181023

REACTIONS (6)
  - Pulmonary artery thrombosis [Recovering/Resolving]
  - Vena cava thrombosis [Unknown]
  - Subclavian vein thrombosis [Unknown]
  - Pulmonary hypertension [Recovered/Resolved]
  - Pelvic venous thrombosis [Not Recovered/Not Resolved]
  - Drug ineffective [Unknown]

NARRATIVE: CASE EVENT DATE: 20190312
